FAERS Safety Report 19190583 (Version 1)
Quarter: 2021Q2

REPORT INFORMATION
  Report Type: Report from Study
  Country: NL (occurrence: NL)
  Receive Date: 20210428
  Receipt Date: 20210428
  Transmission Date: 20210717
  Serious: Yes (Other)
  Sender: FDA-Public Use
  Company Number: NL-MYLANLABS-2021M1024882

PATIENT
  Sex: Male

DRUGS (1)
  1. GLATIRAMEERACETAAT MYLAN 40 MG/ML [Suspect]
     Active Substance: GLATIRAMER ACETATE
     Indication: MULTIPLE SCLEROSIS
     Dosage: 40 MILLIGRAM, 3XW
     Route: 058

REACTIONS (1)
  - Multiple sclerosis [Unknown]
